FAERS Safety Report 7984057-7 (Version None)
Quarter: 2011Q4

REPORT INFORMATION
  Report Type: 
  Country: None (occurrence: None)
  Receive Date: 20111216
  Receipt Date: 20111207
  Transmission Date: 20120403
  Serious: Yes (Other)
  Sender: FDA-Public Use
  Company Number: FR-PFIZER INC-K201100065

PATIENT
  Age: 60 Year
  Sex: Male

DRUGS (5)
  1. RAMIPRIL [Suspect]
     Indication: HYPERTENSION
     Dosage: 2.5 MG, DAILY
     Route: 048
     Dates: end: 20101220
  2. RAMIPRIL [Suspect]
     Dosage: 5 MG, DAILY
     Dates: start: 20101220, end: 20110110
  3. BUDESONIDE [Concomitant]
     Indication: ASTHMA
     Dosage: UNK
  4. TIOTROPIUM [Concomitant]
     Indication: ASTHMA
     Dosage: UNK
  5. RAMIPRIL [Suspect]
     Dosage: 2.5 MG, UNK
     Dates: start: 20110110

REACTIONS (3)
  - RETINAL VEIN OCCLUSION [None]
  - VISUAL ACUITY REDUCED [None]
  - HYPERTENSION [None]
